FAERS Safety Report 9822138 (Version 1)
Quarter: 2014Q1

REPORT INFORMATION
  Report Type: Report from Study
  Country: FR (occurrence: FR)
  Receive Date: 20140116
  Receipt Date: 20140116
  Transmission Date: 20141002
  Serious: Yes (Other)
  Sender: FDA-Public Use
  Company Number: FR-VIIV HEALTHCARE LIMITED-B0959381A

PATIENT
  Age: 66 Year
  Sex: Male

DRUGS (2)
  1. KIVEXA [Suspect]
     Indication: HIV INFECTION
     Route: 065
  2. ISENTRESS [Suspect]
     Indication: HIV INFECTION
     Route: 065

REACTIONS (1)
  - Renal failure [Unknown]
